FAERS Safety Report 7400261-0 (Version None)
Quarter: 2011Q2

REPORT INFORMATION
  Report Type: 
  Country: None (occurrence: None)
  Receive Date: 20110407
  Receipt Date: 20110329
  Transmission Date: 20111010
  Serious: Yes (Other)
  Sender: FDA-Public Use
  Company Number: US-ASTRAZENECA-2011SE18246

PATIENT
  Age: 49 Year
  Sex: Female

DRUGS (2)
  1. OMEPRAZOLE [Suspect]
     Route: 048
  2. NEXIUM [Concomitant]

REACTIONS (5)
  - DYSPHAGIA [None]
  - GASTROOESOPHAGITIS [None]
  - OESOPHAGITIS [None]
  - ABDOMINAL NEOPLASM [None]
  - GASTRITIS [None]
